FAERS Safety Report 16136932 (Version 1)
Quarter: 2019Q2

REPORT INFORMATION
  Report Type: Spontaneous
  Country: GB (occurrence: GB)
  Receive Date: 20190401
  Receipt Date: 20190401
  Transmission Date: 20190711
  Serious: Yes (Other)
  Sender: FDA-Public Use
  Company Number: GB-CPL-000952

PATIENT
  Age: 87 Year
  Sex: Female
  Weight: 49 kg

DRUGS (9)
  1. NITROFURANTOIN/NITROFURANTOIN SODIUM [Concomitant]
  2. MIRTAZAPINE. [Concomitant]
     Active Substance: MIRTAZAPINE
  3. DONEPEZIL. [Suspect]
     Active Substance: DONEPEZIL
     Indication: MIXED DEMENTIA
     Route: 048
     Dates: start: 20180301, end: 20190201
  4. PROLIA [Concomitant]
     Active Substance: DENOSUMAB
  5. FOLIC ACID. [Concomitant]
     Active Substance: FOLIC ACID
  6. BISOPROLOL [Concomitant]
     Active Substance: BISOPROLOL
  7. MEMANTINE. [Concomitant]
     Active Substance: MEMANTINE
  8. ACETYLSALICYLIC ACID [Concomitant]
     Active Substance: ASPIRIN
  9. FULTIUM [Concomitant]
     Active Substance: CHOLECALCIFEROL

REACTIONS (1)
  - Salivary hypersecretion [Recovered/Resolved]

NARRATIVE: CASE EVENT DATE: 20181001
